FAERS Safety Report 5987353-8 (Version None)
Quarter: 2008Q4

REPORT INFORMATION
  Report Type: 
  Country: None (occurrence: None)
  Receive Date: 20081209
  Receipt Date: 20081201
  Transmission Date: 20090506
  Serious: Yes (Other)
  Sender: FDA-Public Use
  Company Number: PHBS2008BR06569

PATIENT

DRUGS (2)
  1. PAMIDRONATE DISODIUM [Suspect]
     Indication: MULTIPLE MYELOMA
     Route: 042
  2. CHEMOTHERAPEUTICS NOS [Concomitant]
     Indication: MULTIPLE MYELOMA

REACTIONS (1)
  - OSTEONECROSIS [None]
